FAERS Safety Report 12633339 (Version 2)
Quarter: 2016Q3

REPORT INFORMATION
  Report Type: Spontaneous
  Country: US (occurrence: US)
  Receive Date: 20160808
  Receipt Date: 20160808
  Transmission Date: 20161109
  Serious: No
  Sender: FDA-Public Use
  Company Number: US-BEH-2016060613

PATIENT
  Sex: Female
  Weight: 90 kg

DRUGS (22)
  1. VITAMIN B [Concomitant]
     Active Substance: VITAMIN B
  2. LORATASDINE [Concomitant]
  3. TOPROL XL [Concomitant]
     Active Substance: METOPROLOL SUCCINATE
  4. LMX [Concomitant]
     Active Substance: LIDOCAINE
  5. MELOXICAM. [Concomitant]
     Active Substance: MELOXICAM
  6. SYSTANE (HYPROMELLOSE 2910 (4000 MPA.S)) [Concomitant]
     Active Substance: HYPROMELLOSE 2910 (4000 MPA.S)
  7. SIMVASTATIN. [Concomitant]
     Active Substance: SIMVASTATIN
  8. HIZENTRA [Suspect]
     Active Substance: HUMAN IMMUNOGLOBULIN G
     Indication: IMMUNODEFICIENCY COMMON VARIABLE
     Route: 058
     Dates: start: 20100629
  9. DIPHENHYDRAMINE. [Concomitant]
     Active Substance: DIPHENHYDRAMINE
  10. EPIPEN [Concomitant]
     Active Substance: EPINEPHRINE
  11. PROBIOTIC [Concomitant]
     Active Substance: PROBIOTICS NOS
  12. FLONASE [Concomitant]
     Active Substance: FLUTICASONE PROPIONATE
  13. FISH OIL [Concomitant]
     Active Substance: FISH OIL
  14. MECLIZINE [Concomitant]
     Active Substance: MECLIZINE HYDROCHLORIDE
  15. TYLENOL [Concomitant]
     Active Substance: ACETAMINOPHEN
  16. SYMBICORT [Concomitant]
     Active Substance: BUDESONIDE\FORMOTEROL FUMARATE DIHYDRATE
  17. MULTIVITAMIN [Concomitant]
     Active Substance: VITAMINS
  18. NIACIN. [Concomitant]
     Active Substance: NIACIN
  19. SPIRONLACTONE [Concomitant]
  20. SINGULAIR [Concomitant]
     Active Substance: MONTELUKAST SODIUM
  21. GLUCOSAMINE [Concomitant]
     Active Substance: GLUCOSAMINE
  22. ASPIRIN. [Concomitant]
     Active Substance: ASPIRIN

REACTIONS (1)
  - Asthma [Unknown]
